FAERS Safety Report 4331716-3 (Version None)
Quarter: 2004Q2

REPORT INFORMATION
  Report Type: 
  Country: None (occurrence: None)
  Receive Date: 20040405
  Receipt Date: 20030411
  Transmission Date: 20050107
  Serious: No
  Sender: FDA-Public Use
  Company Number: US-GLAXOSMITHKLINE-A0404686A

PATIENT
  Age: 75 Year
  Sex: Female

DRUGS (1)
  1. FLOVENT [Suspect]
     Indication: ASTHMA
     Dosage: 220MCG PER DAY
     Route: 055
     Dates: start: 20030410, end: 20030410

REACTIONS (4)
  - ASTHENIA [None]
  - DEPRESSED MOOD [None]
  - HOARSENESS [None]
  - TREMOR [None]
